FAERS Safety Report 23320102 (Version 1)
Quarter: 2023Q4

REPORT INFORMATION
  Report Type: Spontaneous
  Country: GB (occurrence: GB)
  Receive Date: 20231220
  Receipt Date: 20231220
  Transmission Date: 20240110
  Serious: Yes (Other)
  Sender: FDA-Public Use
  Company Number: None

PATIENT

DRUGS (1)
  1. LEVOTHYROXINE [Suspect]
     Active Substance: LEVOTHYROXINE
     Indication: Product used for unknown indication
     Route: 065

REACTIONS (6)
  - Hypersensitivity [Unknown]
  - Dysphagia [Unknown]
  - Tongue discomfort [Unknown]
  - Product substitution issue [Unknown]
  - Oral discomfort [Unknown]
  - Swollen tongue [Unknown]
